FAERS Safety Report 12681041 (Version 2)
Quarter: 2016Q3

REPORT INFORMATION
  Report Type: Report from Study
  Country: CZ (occurrence: CZ)
  Receive Date: 20160824
  Receipt Date: 20160901
  Transmission Date: 20161109
  Serious: Yes (Death, Life-Threatening, Hospitalization)
  Sender: FDA-Public Use
  Company Number: CZ-PFIZER INC-2016388138

PATIENT
  Age: 70 Year
  Sex: Male
  Weight: 80 kg

DRUGS (10)
  1. BLINDED PLACEBO [Suspect]
     Active Substance: INVESTIGATIONAL PRODUCT
     Indication: SQUAMOUS CELL CARCINOMA
     Dosage: 125 MG, DAILY
     Route: 048
     Dates: start: 20160722, end: 20160725
  2. BLINDED PALBOCICLIB/PLACEBO [Suspect]
     Active Substance: PALBOCICLIB
     Indication: SQUAMOUS CELL CARCINOMA
     Dosage: 125 MG, DAILY
     Route: 048
     Dates: start: 20160722, end: 20160725
  3. BLINDED PLACEBO [Suspect]
     Active Substance: INVESTIGATIONAL PRODUCT
     Indication: SQUAMOUS CELL CARCINOMA
     Dosage: 125 MG, DAILY
     Route: 048
     Dates: start: 20160722, end: 20160725
  4. DOCETAXEL. [Suspect]
     Active Substance: DOCETAXEL
     Indication: NEOPLASM MALIGNANT
     Dosage: 150 MG, SINGLE
     Route: 042
     Dates: start: 20160803, end: 20160803
  5. BLINDED PALBOCICLIB/PLACEBO [Suspect]
     Active Substance: PALBOCICLIB
     Indication: SQUAMOUS CELL CARCINOMA
     Dosage: 125 MG, DAILY
     Route: 048
     Dates: start: 20160722, end: 20160725
  6. ALGIFEN NEO [Concomitant]
     Indication: PAIN
     Dosage: 60 GTT, 3X/DAY
     Route: 048
     Dates: start: 201509
  7. AGEN [Concomitant]
     Indication: HYPERTENSION
     Dosage: 5 MG, DAILY
     Route: 048
     Dates: start: 201602
  8. MILURIT [Concomitant]
     Active Substance: ALLOPURINOL
     Indication: ARTHRITIS
     Dosage: 100 MG, DAILY
     Route: 048
     Dates: start: 20160609
  9. CETUXIMAB [Suspect]
     Active Substance: CETUXIMAB
     Indication: SQUAMOUS CELL CARCINOMA
     Dosage: 800 MG, UNK
     Route: 042
     Dates: start: 20160722, end: 20160722
  10. CARBOPLATIN. [Suspect]
     Active Substance: CARBOPLATIN
     Indication: NEOPLASM MALIGNANT
     Dosage: 335 MG, SINGLE
     Route: 042
     Dates: start: 20160803, end: 20160803

REACTIONS (1)
  - Sepsis [Fatal]

NARRATIVE: CASE EVENT DATE: 20160810
